FAERS Safety Report 6971497-8 (Version None)
Quarter: 2010Q3

REPORT INFORMATION
  Report Type: 
  Country: None (occurrence: None)
  Receive Date: 20100908
  Receipt Date: 20100829
  Transmission Date: 20110219
  Serious: Yes (Other)
  Sender: FDA-Public Use
  Company Number: US-ABBOTT-10P-163-0668092-00

PATIENT
  Age: 37 Year
  Sex: Female

DRUGS (1)
  1. HUMIRA [Suspect]
     Indication: RHEUMATOID ARTHRITIS
     Dates: start: 20100815

REACTIONS (5)
  - INJECTION SITE PRURITUS [None]
  - INJECTION SITE RASH [None]
  - LIP SWELLING [None]
  - LYMPHADENOPATHY [None]
  - PRURITUS GENERALISED [None]
